FAERS Safety Report 4301357-2 (Version None)
Quarter: 2004Q1

REPORT INFORMATION
  Report Type: 
  Country: None (occurrence: None)
  Receive Date: 20040219
  Receipt Date: 20040204
  Transmission Date: 20041129
  Serious: Yes (Hospitalization)
  Sender: FDA-Public Use
  Company Number: 02100-JPN-04-0029

PATIENT
  Age: 83 Year
  Sex: Male

DRUGS (3)
  1. CILOSTAZOL [Suspect]
     Indication: CEREBRAL INFARCTION
     Dosage: 200 MG
     Route: 048
     Dates: start: 20031219, end: 20040204
  2. NIFEDIPINE [Concomitant]
  3. CANDESARTAN CILEXETIL [Concomitant]

REACTIONS (3)
  - ASTHMA [None]
  - ECZEMA [None]
  - LOBAR PNEUMONIA [None]
